FAERS Safety Report 6648381-2 (Version None)
Quarter: 2010Q1

REPORT INFORMATION
  Report Type: 
  Country: None (occurrence: None)
  Receive Date: 20100324
  Receipt Date: 20100311
  Transmission Date: 20100710
  Serious: Yes (Hospitalization)
  Sender: FDA-Public Use
  Company Number: CA-ELI_LILLY_AND_COMPANY-CA201003003539

PATIENT
  Age: 64 Year
  Sex: Female

DRUGS (20)
  1. FORTEO [Suspect]
     Indication: OSTEOPOROSIS
     Dosage: 20 UG, DAILY (1/D)
     Dates: start: 20080105, end: 20080801
  2. FORTEO [Suspect]
     Dosage: 20 UG, DAILY (1/D)
     Dates: start: 20091205, end: 20091206
  3. PREMARIN [Concomitant]
  4. PROGESTERONE [Concomitant]
  5. BACLOFEN [Concomitant]
  6. GABAPENTIN [Concomitant]
  7. TRAMACET [Concomitant]
  8. TEGRETOL [Concomitant]
  9. CALCIUM [Concomitant]
  10. VITAMIN D [Concomitant]
  11. OVOL [Concomitant]
  12. DICETEL [Concomitant]
  13. ASPIRIN [Concomitant]
  14. TYLENOL (CAPLET) [Concomitant]
  15. COLACE [Concomitant]
  16. SENOKOT [Concomitant]
  17. MAALOX [Concomitant]
  18. URSODIOL [Concomitant]
  19. METHOTREXATE [Concomitant]
  20. NOZINAN [Concomitant]

REACTIONS (1)
  - LOWER LIMB FRACTURE [None]
